FAERS Safety Report 18386998 (Version 1)
Quarter: 2020Q4

REPORT INFORMATION
  Report Type: Report from Study
  Country: GB (occurrence: GB)
  Receive Date: 20201015
  Receipt Date: 20201015
  Transmission Date: 20210114
  Serious: Yes (Hospitalization)
  Sender: FDA-Public Use
  Company Number: NVSC2020GB274366

PATIENT
  Sex: Male

DRUGS (1)
  1. HYRIMOZ [Suspect]
     Active Substance: ADALIMUMAB-ADAZ
     Indication: CROHN^S DISEASE
     Dosage: 40/ 0.8 MG/ ML, QW
     Route: 065
     Dates: start: 20190924

REACTIONS (3)
  - Intestinal obstruction [Unknown]
  - Crohn^s disease [Unknown]
  - Appendicitis [Unknown]
